FAERS Safety Report 18906704 (Version 1)
Quarter: 2021Q1

REPORT INFORMATION
  Report Type: Spontaneous
  Country: US (occurrence: US)
  Receive Date: 20210218
  Receipt Date: 20210218
  Transmission Date: 20210420
  Serious: No
  Sender: FDA-Public Use
  Company Number: US-ASTRAZENECA-2021A062759

PATIENT
  Age: 23211 Day
  Sex: Female

DRUGS (1)
  1. BYDUREON BCISE [Suspect]
     Active Substance: EXENATIDE
     Route: 058
     Dates: start: 20201230

REACTIONS (3)
  - Incorrect dose administered by device [Unknown]
  - Device leakage [Unknown]
  - Injection site pain [Unknown]

NARRATIVE: CASE EVENT DATE: 20210201
